FAERS Safety Report 10610025 (Version 4)
Quarter: 2015Q1

REPORT INFORMATION
  Report Type: Report from Study
  Country: CA (occurrence: CA)
  Receive Date: 20141126
  Receipt Date: 20150120
  Transmission Date: 20150720
  Serious: Yes (Other)
  Sender: FDA-Public Use
  Company Number: CA-JNJFOC-20141010755

PATIENT
  Age: 67 Year
  Sex: Female
  Weight: 99 kg

DRUGS (9)
  1. VITAMIN C [Concomitant]
     Active Substance: ASCORBIC ACID
     Route: 065
  2. INFLIXIMAB, RECOMBINANT [Suspect]
     Active Substance: INFLIXIMAB
     Indication: PSORIATIC ARTHROPATHY
     Route: 042
     Dates: start: 20081202
  3. VITAMIN D [Concomitant]
     Active Substance: CHOLECALCIFEROL
     Route: 065
  4. INFLIXIMAB, RECOMBINANT [Suspect]
     Active Substance: INFLIXIMAB
     Indication: PSORIATIC ARTHROPATHY
     Route: 042
     Dates: start: 201409
  5. METHOTREXATE [Concomitant]
     Active Substance: METHOTREXATE
     Route: 065
  6. LIPITOR [Concomitant]
     Active Substance: ATORVASTATIN CALCIUM
     Route: 065
  7. ACLASTA [Concomitant]
     Active Substance: ZOLEDRONIC ACID
     Route: 065
  8. SYNTHROID [Concomitant]
     Active Substance: LEVOTHYROXINE SODIUM
     Route: 065
  9. FOLIC ACID. [Concomitant]
     Active Substance: FOLIC ACID
     Route: 065

REACTIONS (8)
  - Occult blood positive [Recovering/Resolving]
  - Nasopharyngitis [Recovered/Resolved]
  - Productive cough [Recovered/Resolved]
  - Malaise [Recovered/Resolved]
  - Sinus congestion [Recovered/Resolved]
  - Pyrexia [Recovered/Resolved]
  - Anaemia [Recovering/Resolving]
  - Polyp [Recovering/Resolving]

NARRATIVE: CASE EVENT DATE: 20140924
